FAERS Safety Report 7638933-5 (Version None)
Quarter: 2011Q3

REPORT INFORMATION
  Report Type: 
  Country: None (occurrence: None)
  Receive Date: 20110721
  Receipt Date: 20110705
  Transmission Date: 20111222
  Serious: Yes (Hospitalization)
  Sender: FDA-Public Use
  Company Number: PYR-11-18

PATIENT
  Age: 49 Year
  Sex: Male

DRUGS (4)
  1. RIFAMPICIN [Concomitant]
  2. ISONIAZID [Concomitant]
  3. STREPTOMYCIN [Concomitant]
  4. PYRAZINAMIDE [Suspect]
     Indication: TUBERCULOSIS

REACTIONS (5)
  - PLEURAL EFFUSION [None]
  - NECROSIS [None]
  - IMMUNE RECONSTITUTION SYNDROME [None]
  - LYMPHADENOPATHY [None]
  - PERICARDIAL EFFUSION [None]
